FAERS Safety Report 25269515 (Version 1)
Quarter: 2025Q2

REPORT INFORMATION
  Report Type: Spontaneous
  Country: FR (occurrence: FR)
  Receive Date: 20250505
  Receipt Date: 20250505
  Transmission Date: 20250716
  Serious: Yes (Other)
  Sender: MYLAN
  Company Number: None

PATIENT
  Age: 51 Year
  Sex: Female

DRUGS (2)
  1. ALPRAZOLAM [Suspect]
     Active Substance: ALPRAZOLAM
     Dosage: 0.25 MILLIGRAM, TID, 1 TABLET OF 0.25 MG MORNING, NOON AND EVENING (0.75 MG/DAY)
     Dates: start: 202205
  2. ZOPICLONE [Suspect]
     Active Substance: ZOPICLONE
     Indication: Product used for unknown indication
     Dosage: 2.5 DOSAGE FORM, QD (2.5 TABLETS OF 3.75 MG AT BEDTIME 9.375 MG/DAY)
     Dates: start: 201903

REACTIONS (1)
  - Drug use disorder [Not Recovered/Not Resolved]
